FAERS Safety Report 13474235 (Version 1)
Quarter: 2017Q2

REPORT INFORMATION
  Report Type: Spontaneous
  Country: US (occurrence: US)
  Receive Date: 20170424
  Receipt Date: 20170424
  Transmission Date: 20170830
  Serious: No
  Sender: FDA-Public Use
  Company Number: US-ELI_LILLY_AND_COMPANY-US201704008305

PATIENT
  Sex: Male

DRUGS (2)
  1. NITROPIN [Concomitant]
     Dosage: UNK, UNKNOWN
     Route: 065
  2. BASAGLAR [Suspect]
     Active Substance: INSULIN GLARGINE
     Indication: PRODUCT USED FOR UNKNOWN INDICATION
     Dosage: UNK, UNKNOWN
     Route: 065

REACTIONS (5)
  - Photosensitivity reaction [Unknown]
  - Hyperhidrosis [Unknown]
  - Feeling hot [Unknown]
  - Cardiac disorder [Unknown]
  - Dyspnoea [Unknown]
